FAERS Safety Report 5943442-5 (Version None)
Quarter: 2008Q4

REPORT INFORMATION
  Report Type: 
  Country: None (occurrence: None)
  Receive Date: 20081105
  Receipt Date: 20081105
  Transmission Date: 20090506
  Serious: Yes (Other)
  Sender: FDA-Public Use
  Company Number: None

PATIENT
  Age: 42 Year
  Sex: Female
  Weight: 74.3899 kg

DRUGS (2)
  1. SEPTRA [Suspect]
     Indication: STAPHYLOCOCCAL INFECTION
     Dates: start: 20081103, end: 20081103
  2. SEPTRA [Suspect]
     Indication: STREPTOCOCCAL INFECTION
     Dates: start: 20081103, end: 20081103

REACTIONS (3)
  - BURNING SENSATION [None]
  - HYPERSENSITIVITY [None]
  - INSOMNIA [None]
